FAERS Safety Report 5328568-1 (Version None)
Quarter: 2007Q2

REPORT INFORMATION
  Report Type: 
  Country: None (occurrence: None)
  Receive Date: 20070518
  Receipt Date: 20070509
  Transmission Date: 20071010
  Serious: Yes (Hospitalization)
  Sender: FDA-Public Use
  Company Number: FR-ASTRAZENECA-2007CG00722

PATIENT
  Age: 77 Year
  Sex: Female

DRUGS (10)
  1. NOLVADEX [Suspect]
     Indication: BREAST CANCER FEMALE
     Route: 048
     Dates: start: 20070224
  2. ANAFRANIL [Suspect]
     Indication: PSYCHOTIC DISORDER
     Route: 048
  3. ORAP [Suspect]
     Indication: PSYCHOTIC DISORDER
     Route: 048
  4. NOROXIN [Suspect]
     Indication: URINARY TRACT INFECTION
     Route: 048
     Dates: start: 20070223, end: 20070226
  5. MINISINTROM [Suspect]
     Indication: ATRIAL FIBRILLATION
     Route: 048
  6. MINISINTROM [Suspect]
     Indication: ATRIAL FLUTTER
     Route: 048
  7. CORDARONE [Suspect]
     Indication: ATRIAL FIBRILLATION
     Route: 048
  8. CORDARONE [Suspect]
     Indication: ATRIAL FLUTTER
     Route: 048
  9. DIGOXIN [Suspect]
     Route: 048
  10. LEPTICUR [Suspect]
     Route: 048

REACTIONS (2)
  - RASH MACULO-PAPULAR [None]
  - SKIN EXFOLIATION [None]
